FAERS Safety Report 7693515-4 (Version None)
Quarter: 2011Q3

REPORT INFORMATION
  Report Type: 
  Country: None (occurrence: None)
  Receive Date: 20110819
  Receipt Date: 20110819
  Transmission Date: 20111222
  Serious: No
  Sender: FDA-Public Use
  Company Number: None

PATIENT
  Age: 75 Year
  Sex: Male
  Weight: 80.739 kg

DRUGS (1)
  1. HYDROCODONE BITARTRATE + ACETAMINOPHEN [Suspect]
     Indication: PAIN
     Dosage: ONE OR TWO TABLETS BY MOUTH
     Dates: start: 20110801, end: 20110818

REACTIONS (6)
  - HALLUCINATION [None]
  - NIGHTMARE [None]
  - FUNCTIONAL GASTROINTESTINAL DISORDER [None]
  - OEDEMA PERIPHERAL [None]
  - ANXIETY [None]
  - CONSTIPATION [None]
